FAERS Safety Report 19024269 (Version 1)
Quarter: 2021Q1

REPORT INFORMATION
  Report Type: Spontaneous
  Country: US (occurrence: US)
  Receive Date: 20210318
  Receipt Date: 20210318
  Transmission Date: 20210420
  Serious: No
  Sender: FDA-Public Use
  Company Number: US-B.I. PHARMACEUTICALS,INC./RIDGEFIELD-2021-BI-090497

PATIENT
  Sex: Male

DRUGS (2)
  1. XOPENEX HFA [Suspect]
     Active Substance: LEVALBUTEROL TARTRATE
     Indication: PRODUCT USED FOR UNKNOWN INDICATION
     Route: 055
     Dates: start: 20201217
  2. SPIRIVA [Suspect]
     Active Substance: TIOTROPIUM BROMIDE MONOHYDRATE
     Indication: PRODUCT USED FOR UNKNOWN INDICATION
     Dosage: 2 INHALATIONS BACK TO BACK
     Route: 055

REACTIONS (2)
  - Hypoacusis [Unknown]
  - Dyspnoea [Unknown]
